FAERS Safety Report 13009281 (Version 1)
Quarter: 2016Q4

REPORT INFORMATION
  Report Type: Spontaneous
  Country: US (occurrence: US)
  Receive Date: 20161208
  Receipt Date: 20161208
  Transmission Date: 20170207
  Serious: No
  Sender: FDA-Public Use
  Company Number: US-BAYER-2016-228997

PATIENT
  Age: 91 Year
  Sex: Male
  Weight: 80.7 kg

DRUGS (2)
  1. MIRALAX [Suspect]
     Active Substance: POLYETHYLENE GLYCOL 3350
     Indication: CONSTIPATION
     Dosage: 1 CAPFUL A DAY
     Route: 048
     Dates: end: 20161129
  2. ALOPURINOL [Concomitant]
     Active Substance: ALLOPURINOL

REACTIONS (1)
  - Product use issue [None]
